FAERS Safety Report 14549013 (Version 1)
Quarter: 2018Q1

REPORT INFORMATION
  Report Type: Spontaneous
  Country: US (occurrence: US)
  Receive Date: 20180219
  Receipt Date: 20180219
  Transmission Date: 20180509
  Serious: No
  Sender: FDA-Public Use
  Company Number: US-ROCHE-1898417

PATIENT
  Sex: Female
  Weight: 71.73 kg

DRUGS (3)
  1. XOLAIR [Suspect]
     Active Substance: OMALIZUMAB
     Route: 058
     Dates: start: 2015
  2. XOLAIR [Suspect]
     Active Substance: OMALIZUMAB
     Indication: SYSTEMIC MASTOCYTOSIS
     Route: 058
  3. XOLAIR [Suspect]
     Active Substance: OMALIZUMAB
     Indication: HAEMATOPOIETIC NEOPLASM
     Route: 058

REACTIONS (3)
  - Palpitations [Unknown]
  - Off label use [Unknown]
  - Extra dose administered [Unknown]
